FAERS Safety Report 13824211 (Version 2)
Quarter: 2017Q4

REPORT INFORMATION
  Report Type: Spontaneous
  Country: JP (occurrence: JP)
  Receive Date: 20170802
  Receipt Date: 20171031
  Transmission Date: 20180320
  Serious: Yes (Hospitalization, Other)
  Sender: FDA-Public Use
  Company Number: JP-AMGEN-JPNSP2017116580

PATIENT
  Age: 60 Year
  Sex: Female
  Weight: 45 kg

DRUGS (11)
  1. G-LASTA [Suspect]
     Active Substance: PEGFILGRASTIM
     Indication: COLONY STIMULATING FACTOR PROPHYLAXIS
     Dosage: 3.6 MG, 1X/2WEEKS
     Route: 058
     Dates: start: 20170303, end: 20170414
  2. ENDOXAN [Suspect]
     Active Substance: CYCLOPHOSPHAMIDE
     Indication: PRODUCT USED FOR UNKNOWN INDICATION
     Dosage: 950 MG, 1X/2WEEKS
     Route: 042
     Dates: start: 20170228, end: 20170411
  3. ALOXI [Concomitant]
     Active Substance: PALONOSETRON HYDROCHLORIDE
     Dosage: 0.75 MG, 1X/2WEEKS
     Route: 042
     Dates: start: 20170228, end: 20170411
  4. PACLITAXEL. [Suspect]
     Active Substance: PACLITAXEL
     Indication: PRODUCT USED FOR UNKNOWN INDICATION
     Dosage: 130 MG, 1X/WEEK
     Route: 042
     Dates: start: 20170425, end: 20170502
  5. LORAZEPAM. [Concomitant]
     Active Substance: LORAZEPAM
     Dosage: 0.5 MG, BID
     Route: 048
     Dates: start: 20170228, end: 20170416
  6. EPIRUBICIN HYDROCHLORIDE. [Concomitant]
     Active Substance: EPIRUBICIN HYDROCHLORIDE
     Dosage: 140 MG, 1X/2WEEKS
     Route: 042
     Dates: start: 20170228, end: 20170411
  7. RESTAMIN [Concomitant]
     Active Substance: DIPHENHYDRAMINE
     Dosage: 50 MG, 1X/WEEK
     Route: 048
     Dates: start: 20170425, end: 20170502
  8. DECADRON [Concomitant]
     Active Substance: DEXAMETHASONE
     Dosage: 9.9 MG, 1X/2WEEKS
     Route: 042
     Dates: start: 20170228, end: 20170411
  9. EMEND [Concomitant]
     Active Substance: APREPITANT
     Dosage: UNK, QD
     Route: 048
     Dates: start: 20170228, end: 20170413
  10. MAGMITT [Concomitant]
     Active Substance: MAGNESIUM OXIDE
     Dosage: 660 MG, BID
     Route: 048
     Dates: start: 20170228, end: 20170425
  11. NEXIUM [Concomitant]
     Active Substance: ESOMEPRAZOLE MAGNESIUM
     Dosage: 10 MG, QD
     Route: 048
     Dates: start: 20170228, end: 20170425

REACTIONS (2)
  - Chemotherapy [Unknown]
  - Interstitial lung disease [Recovered/Resolved]

NARRATIVE: CASE EVENT DATE: 20170509
